FAERS Safety Report 6291265-2 (Version None)
Quarter: 2009Q3

REPORT INFORMATION
  Report Type: 
  Country: None (occurrence: None)
  Receive Date: 20090730
  Receipt Date: 20090720
  Transmission Date: 20100115
  Serious: Yes (Hospitalization)
  Sender: FDA-Public Use
  Company Number: FR-TEVA-203645USA

PATIENT
  Sex: Female

DRUGS (6)
  1. BISELECT [Suspect]
     Dosage: 1 DOSAGE FORM
     Route: 048
  2. OLANZAPINE [Suspect]
     Route: 048
     Dates: end: 20090619
  3. OXAZEPAM [Suspect]
     Dosage: 1 DOSAGE FORM
     Route: 048
  4. TRIHEXYPHENIDYL HCL [Concomitant]
     Indication: PARKINSON'S DISEASE
     Route: 048
  5. FLUINDIONE [Concomitant]
     Route: 048
  6. VALPROATE SEMISODIUM [Concomitant]
     Route: 048

REACTIONS (1)
  - FALL [None]
